FAERS Safety Report 6246738-5 (Version None)
Quarter: 2009Q2

REPORT INFORMATION
  Report Type: 
  Country: None (occurrence: None)
  Receive Date: 20090626
  Receipt Date: 20090615
  Transmission Date: 20091009
  Serious: Yes (Death)
  Sender: FDA-Public Use
  Company Number: TR-PFIZER INC-2009228377

PATIENT
  Age: 32 Year

DRUGS (1)
  1. ZIPRASIDONE HCL [Suspect]
     Indication: SCHIZOPHRENIA
     Dosage: 180 MG, UNK
     Route: 048

REACTIONS (1)
  - CARDIOVASCULAR INSUFFICIENCY [None]
